FAERS Safety Report 4653201-1 (Version None)
Quarter: 2005Q2

REPORT INFORMATION
  Report Type: 
  Country: None (occurrence: None)
  Receive Date: 20050503
  Receipt Date: 20050421
  Transmission Date: 20051028
  Serious: Yes (Hospitalization)
  Sender: FDA-Public Use
  Company Number: 163-20785-05040457

PATIENT
  Age: 41 Year
  Sex: Male

DRUGS (5)
  1. THALOMID [Suspect]
     Indication: PANCREATIC CARCINOMA
     Dosage: 200 MG, DAILY, ORAL
     Route: 048
     Dates: start: 20050127, end: 20050417
  2. THALOMID [Suspect]
     Indication: PANCREATIC CARCINOMA
     Dosage: 200 MG, DAILY, ORAL
     Route: 048
     Dates: start: 20040901
  3. ATENOLOL [Concomitant]
  4. MORPHINE [Concomitant]
  5. AMBIEN [Concomitant]

REACTIONS (2)
  - COLITIS [None]
  - HEPATOMEGALY [None]
